FAERS Safety Report 5045095-X (Version None)
Quarter: 2006Q3

REPORT INFORMATION
  Report Type: 
  Country: None (occurrence: None)
  Receive Date: 20060707
  Receipt Date: 20060627
  Transmission Date: 20061208
  Serious: Yes (Hospitalization)
  Sender: FDA-Public Use
  Company Number: BR-JNJFOC-20060700390

PATIENT
  Age: 54 Year
  Sex: Female

DRUGS (5)
  1. TOPAMAX [Suspect]
     Route: 048
  2. TOPAMAX [Suspect]
     Indication: MIGRAINE
     Route: 048
  3. DIZERILA [Suspect]
  4. DIZERILA [Suspect]
     Indication: DRUG USE FOR UNKNOWN INDICATION
  5. LITIUM [Concomitant]
     Route: 048

REACTIONS (2)
  - DRUG INEFFECTIVE [None]
  - DRUG TOXICITY [None]
